FAERS Safety Report 5690822-1 (Version None)
Quarter: 2008Q2

REPORT INFORMATION
  Report Type: 
  Country: None (occurrence: None)
  Receive Date: 20080401
  Receipt Date: 20080327
  Transmission Date: 20081010
  Serious: Yes (Hospitalization)
  Sender: FDA-Public Use
  Company Number: B0512351A

PATIENT
  Age: 81 Year
  Sex: Male
  Weight: 70 kg

DRUGS (14)
  1. ARIXTRA [Suspect]
     Indication: DRUG USE FOR UNKNOWN INDICATION
     Dosage: 2.5MG PER DAY
     Route: 058
     Dates: start: 20080229, end: 20080308
  2. CEFOTIAM HYDROCHLORIDE [Suspect]
     Indication: DRUG USE FOR UNKNOWN INDICATION
     Route: 042
     Dates: start: 20080228, end: 20080304
  3. FLOMOX [Suspect]
     Indication: DRUG USE FOR UNKNOWN INDICATION
     Route: 048
     Dates: start: 20080305, end: 20080307
  4. LOXOPROFEN SODIUM [Suspect]
     Indication: PAIN
     Dosage: 60MG PER DAY
     Route: 048
     Dates: start: 20080304, end: 20080308
  5. TAKEPRON [Concomitant]
     Indication: GASTRITIS
     Dosage: 15MG PER DAY
     Route: 048
     Dates: start: 20080307, end: 20080311
  6. UNKNOWN MEDICATION [Concomitant]
     Dosage: 6G PER DAY
     Route: 048
     Dates: start: 20080229, end: 20080307
  7. ENALAPRIL MALEATE [Concomitant]
     Dosage: 5MG PER DAY
     Route: 048
  8. MICARDIS [Concomitant]
     Dosage: 40MG PER DAY
     Route: 048
  9. ADALAT [Concomitant]
     Indication: HYPERTENSION
     Dosage: 20MG PER DAY
     Route: 048
     Dates: end: 20080306
  10. FERROMIA [Concomitant]
     Dosage: 100MG PER DAY
     Route: 048
  11. FUROSEMIDE [Concomitant]
     Dosage: 20MG PER DAY
     Route: 048
  12. PENTAZOCINE LACTATE [Concomitant]
     Indication: PAIN
     Dosage: 15MG PER DAY
     Route: 030
     Dates: start: 20080303, end: 20080303
  13. ATARAX [Concomitant]
     Indication: PAIN
     Dosage: 25MG PER DAY
     Route: 030
     Dates: start: 20080303, end: 20080303
  14. EPOGIN INJ [Concomitant]
     Route: 058

REACTIONS (4)
  - HEPATIC FUNCTION ABNORMAL [None]
  - OVERDOSE [None]
  - RENAL IMPAIRMENT [None]
  - WOUND HAEMORRHAGE [None]
